FAERS Safety Report 8249882-6 (Version None)
Quarter: 2012Q2

REPORT INFORMATION
  Report Type: 
  Country: None (occurrence: None)
  Receive Date: 20120402
  Receipt Date: 20120326
  Transmission Date: 20120825
  Serious: Yes (Other)
  Sender: FDA-Public Use
  Company Number: PHHY2009CA01112

PATIENT
  Sex: Female

DRUGS (3)
  1. SANDOSTATIN LAR [Suspect]
     Dosage: 30 MG, EVERY FOUR WEEKS
     Route: 030
  2. SANDOSTATIN LAR [Suspect]
     Indication: NEUROENDOCRINE TUMOUR
     Dosage: 30 MG, QMO (EVERY 4 WEEKS)
     Route: 030
     Dates: start: 20080616
  3. SANDOSTATIN LAR [Suspect]
     Dosage: 30 MG, QW3
     Route: 030
     Dates: start: 20080616

REACTIONS (9)
  - FAECES DISCOLOURED [None]
  - MUSCULOSKELETAL PAIN [None]
  - MUSCLE SPASMS [None]
  - EPISTAXIS [None]
  - NASOPHARYNGITIS [None]
  - DIARRHOEA [None]
  - ABDOMINAL DISTENSION [None]
  - FLATULENCE [None]
  - EYE PAIN [None]
